FAERS Safety Report 25767009 (Version 1)
Quarter: 2025Q3

REPORT INFORMATION
  Report Type: Spontaneous
  Country: US (occurrence: US)
  Receive Date: 20250905
  Receipt Date: 20250905
  Transmission Date: 20251020
  Serious: No
  Sender: BRISTOL-MYERS SQUIBB COMPANY
  Company Number: US-BRISTOL-MYERS SQUIBB COMPANY-2025-123130

PATIENT
  Age: 56 Year
  Sex: Female

DRUGS (5)
  1. SPRYCEL [Suspect]
     Active Substance: DASATINIB
     Indication: Leukaemia
     Route: 048
  2. SPRYCEL [Suspect]
     Active Substance: DASATINIB
     Route: 048
  3. SPRYCEL [Suspect]
     Active Substance: DASATINIB
     Dosage: STRENGTH - 80MG
     Route: 048
  4. SPRYCEL [Suspect]
     Active Substance: DASATINIB
     Route: 048
  5. AMLODIPINE BESYLATE [Concomitant]
     Active Substance: AMLODIPINE BESYLATE
     Indication: Product used for unknown indication

REACTIONS (1)
  - Product dose omission issue [Unknown]
